APPROVED DRUG PRODUCT: HYDROXYCHLOROQUINE SULFATE
Active Ingredient: HYDROXYCHLOROQUINE SULFATE
Strength: 200MG
Dosage Form/Route: TABLET;ORAL
Application: A040760 | Product #001
Applicant: HIKMA PHARMACEUTICALS
Approved: Aug 15, 2007 | RLD: No | RS: No | Type: DISCN